FAERS Safety Report 6043299 (Version 9)
Quarter: 2012Q4

REPORT INFORMATION
  Report Type: 
  Country: US (occurrence: US)
  Receive Date: 20060511
  Receipt Date: 20121122
  Transmission Date: 20130627
  Serious: Yes (Death, Other)
  Sender: FDA-Public Use
  Company Number: PHEH2006US05805

PATIENT
  Age: 64 Year
  Sex: Female

DRUGS (1)
  1. ZOMETA [Suspect]
     Indication: PROPHYLAXIS
     Route: 042
     Dates: end: 200511

REACTIONS (26)
  - Oral infection [Unknown]
  - Gingival disorder [Unknown]
  - Loose tooth [Unknown]
  - Bone disorder [Unknown]
  - Oral pain [Unknown]
  - Pleural effusion [Unknown]
  - Atelectasis [Unknown]
  - Haematemesis [Unknown]
  - Mental status changes [Unknown]
  - Sinus tachycardia [Unknown]
  - Hyperglycaemia [Unknown]
  - Metastases to liver [Unknown]
  - Metastases to lung [Unknown]
  - Metastases to heart [Unknown]
  - Electrocardiogram T wave abnormal [Unknown]
  - Lymphadenopathy [Unknown]
  - Dyspnoea [Unknown]
  - Arrhythmia [Unknown]
  - Pericardial effusion [Unknown]
  - Ascites [Unknown]
  - Oedema peripheral [Unknown]
  - Anaemia [Unknown]
  - Sinusitis [Unknown]
  - Metastases to abdominal cavity [Unknown]
  - Death [Fatal]
  - Osteonecrosis of jaw [Unknown]
